FAERS Safety Report 7534606-8 (Version None)
Quarter: 2011Q2

REPORT INFORMATION
  Report Type: 
  Country: None (occurrence: None)
  Receive Date: 20110609
  Receipt Date: 20101112
  Transmission Date: 20111010
  Serious: Yes (Hospitalization, Other)
  Sender: FDA-Public Use
  Company Number: PHHY2010US90277

PATIENT
  Sex: Male
  Weight: 126 kg

DRUGS (30)
  1. ZOMETA [Suspect]
     Indication: METASTASES TO BONE
     Dosage: 4 MG, QMO
     Route: 042
     Dates: start: 20090615
  2. TAXOTERE [Suspect]
  3. VITAMIN D [Concomitant]
  4. LOVENOX [Concomitant]
  5. ZOMETA [Suspect]
     Dosage: 4 MG, UNK
     Route: 042
     Dates: start: 20091118
  6. JEVTANA KIT [Suspect]
  7. TYLENOL-500 [Concomitant]
  8. LIDOCAINE [Concomitant]
  9. ALPHA LIPOIC ACID [Concomitant]
  10. VITAMIN B6 [Concomitant]
  11. PRILOSEC [Concomitant]
  12. CLINDAMYCIN [Concomitant]
     Dosage: 600 MG, UNK
  13. LORTAB [Concomitant]
     Indication: PAIN
  14. FLAGYL [Concomitant]
     Dosage: 500 MG, TID
  15. DIFLUCAN [Concomitant]
     Dosage: 200 MG, DAILY
  16. CHLORHEXIDINE GLUCONATE [Concomitant]
  17. OMEPRAZOLE [Concomitant]
     Dosage: 40 MG, ONCE DAILY
  18. PREDNISOLONE [Concomitant]
     Dosage: 5 MG, UNK
  19. KEPPRA [Concomitant]
     Dosage: 500 MG, UNK
  20. CLARITIN [Concomitant]
  21. KEFLEX [Concomitant]
     Dosage: 500 MG, QID
  22. ROCEPHIN [Concomitant]
     Dosage: 1 G, DAILY
  23. ZOMETA [Suspect]
     Indication: PROSTATE CANCER
     Dosage: 4 MG, UNK
     Route: 042
     Dates: start: 20090715
  24. ZOMETA [Suspect]
     Dosage: 4 MG, UNK
     Route: 042
     Dates: start: 20100125
  25. ZOMETA [Suspect]
     Dosage: 4 MG, UNK
     Route: 042
     Dates: start: 20100422
  26. ZOMETA [Suspect]
     Dosage: 4 MG, UNK
     Route: 042
     Dates: start: 20100617
  27. ZOMETA [Suspect]
     Dosage: 4 MG, UNK
     Route: 042
     Dates: end: 20100805
  28. METOPROLOL [Concomitant]
     Dosage: 25 MG, BID
  29. VANCOMYCIN [Concomitant]
     Dosage: 1 G, UNK
     Route: 042
  30. VICODIN [Concomitant]

REACTIONS (18)
  - HYPOKALAEMIA [None]
  - JAW DISORDER [None]
  - TACHYCARDIA [None]
  - NEUROPATHY PERIPHERAL [None]
  - PYREXIA [None]
  - NEOPLASM MALIGNANT [None]
  - PAIN IN JAW [None]
  - CONVULSION [None]
  - OSTEOMYELITIS [None]
  - JAW FRACTURE [None]
  - STREPTOBACILLUS INFECTION [None]
  - CELLULITIS [None]
  - NEUTROPENIC SEPSIS [None]
  - NEUTROPENIA [None]
  - GASTROINTESTINAL HAEMORRHAGE [None]
  - GAIT DISTURBANCE [None]
  - OSTEONECROSIS OF JAW [None]
  - SUBCUTANEOUS ABSCESS [None]
